FAERS Safety Report 4384020-1 (Version None)
Quarter: 2004Q2

REPORT INFORMATION
  Report Type: 
  Country: None (occurrence: None)
  Receive Date: 20040621
  Receipt Date: 20040604
  Transmission Date: 20050107
  Serious: Yes (Hospitalization)
  Sender: FDA-Public Use
  Company Number: DSA_24497_2004

PATIENT
  Age: 30 Year
  Sex: Female

DRUGS (2)
  1. LORAZEPAM [Suspect]
     Dates: start: 20040601, end: 20040601
  2. CORN SCHNAPPS [Suspect]
     Dosage: 0.5 L ONCE PO
     Route: 048
     Dates: start: 20040601, end: 20040601

REACTIONS (4)
  - ALCOHOL USE [None]
  - DRUG ABUSER [None]
  - FEELING DRUNK [None]
  - VOMITING [None]
